FAERS Safety Report 9522554 (Version 1)
Quarter: 2013Q1

REPORT INFORMATION
  Report Type: Spontaneous
  Country: US (occurrence: None)
  Receive Date: 20130305
  Receipt Date: 20130305
  Transmission Date: 20140127
  Serious: Yes (Other)
  Sender: FDA-Public Use
  Company Number: 1630-21880-12063863

PATIENT
  Age: 55 Year
  Sex: Female
  Weight: 88 kg

DRUGS (4)
  1. REVLIMID (LENALIDOMIDE) (CAPSULES) [Suspect]
     Indication: PLASMA CELL MYELOMA
     Dosage: 7.5 MG, DAILY FOR 21/28 DAYS, PO
     Route: 048
     Dates: start: 20120328, end: 20120627
  2. LORTAB (VICODIN) [Concomitant]
  3. LOMOTIL (LOMOTIL) [Concomitant]
  4. DEXAMETHASONE (DEXAMETHASONE) [Concomitant]

REACTIONS (1)
  - Plasma cell myeloma [None]
